FAERS Safety Report 10064209 (Version 2)
Quarter: 2014Q2

REPORT INFORMATION
  Report Type: Report from Study
  Country: CA (occurrence: CA)
  Receive Date: 20140408
  Receipt Date: 20140502
  Transmission Date: 20141212
  Serious: Yes (Other)
  Sender: FDA-Public Use
  Company Number: CA-JNJFOC-20140401386

PATIENT
  Age: 0 Year
  Sex: Female

DRUGS (5)
  1. REMICADE [Suspect]
     Indication: CROHN^S DISEASE
     Route: 064
     Dates: start: 20140425
  2. REMICADE [Suspect]
     Indication: CROHN^S DISEASE
     Route: 064
     Dates: start: 20080423
  3. SOLUCORTEF [Suspect]
     Indication: PREMEDICATION
     Route: 063
  4. BENADRYL [Suspect]
     Indication: PREMEDICATION
     Route: 063
  5. MAXERAN [Suspect]
     Indication: PREMEDICATION
     Route: 063

REACTIONS (3)
  - Premature baby [Not Recovered/Not Resolved]
  - Foetal exposure during pregnancy [Recovered/Resolved]
  - Exposure during breast feeding [Unknown]
